FAERS Safety Report 15781092 (Version 1)
Quarter: 2019Q1

REPORT INFORMATION
  Report Type: Report from Study
  Country: CA (occurrence: CA)
  Receive Date: 20190102
  Receipt Date: 20190102
  Transmission Date: 20190417
  Serious: Yes (Death)
  Sender: FDA-Public Use
  Company Number: CA-HLSUS-2018-CA-001971

PATIENT
  Age: 53 Year
  Sex: Male
  Weight: 106 kg

DRUGS (13)
  1. ATROPINE. [Concomitant]
     Active Substance: ATROPINE
     Dosage: 1 EVER 1 DAY
     Route: 048
  2. VENTOLIN [Concomitant]
     Active Substance: ALBUTEROL SULFATE
     Dosage: 1 EVERY 1 DAY
  3. CLOZAPINE. [Suspect]
     Active Substance: CLOZAPINE
     Indication: PRODUCT USED FOR UNKNOWN INDICATION
  4. VENLAFAXINE HYDROCHLORIDE. [Concomitant]
     Active Substance: VENLAFAXINE HYDROCHLORIDE
     Dosage: 375 MG 1 EVERY 1 DAY
     Route: 048
  5. RABEPRAZOLE [Concomitant]
     Active Substance: RABEPRAZOLE
     Dosage: 20 MG 1 EVERY 1 DAY
     Route: 048
  6. VITAMIN B12 [Concomitant]
     Active Substance: CYANOCOBALAMIN
     Dosage: 1000 MICROGRAM 1 EVERY 1 DAY
     Route: 048
  7. CLONAZEPAM. [Concomitant]
     Active Substance: CLONAZEPAM
     Dosage: 1 MG 1 EVERY 1 DAY
  8. ZIPRASIDONE. [Concomitant]
     Active Substance: ZIPRASIDONE
     Dosage: 100 MG 2 EVERY 1 DAY
     Route: 048
  9. ZYPREXA [Concomitant]
     Active Substance: OLANZAPINE
     Dosage: 5 MG 2 EVERY 1 DAY
     Route: 048
  10. BUPROPION. [Concomitant]
     Active Substance: BUPROPION
     Dosage: 300 MG 1 EVERY 1 DAY
     Route: 048
  11. CANESTEN [Concomitant]
     Active Substance: CLOTRIMAZOLE
     Dosage: 2 EVERY 1 DAY
  12. RISPERIDONE. [Concomitant]
     Active Substance: RISPERIDONE
     Dosage: 3 MG 2 EVERY 1 DAY
     Route: 048
  13. FERROUS GLUCONATE [Concomitant]
     Active Substance: FERROUS GLUCONATE
     Dosage: 300 MG 1 EVERY 1 DAY

REACTIONS (4)
  - Dyspnoea [Fatal]
  - Hepatic steatosis [Fatal]
  - Death [Fatal]
  - Cardiac disorder [Fatal]
